FAERS Safety Report 12741611 (Version 1)
Quarter: 2016Q3

REPORT INFORMATION
  Report Type: Spontaneous
  Country: US (occurrence: US)
  Receive Date: 20160913
  Receipt Date: 20160913
  Transmission Date: 20161109
  Serious: Yes (Hospitalization)
  Sender: FDA-Public Use
  Company Number: None

PATIENT
  Age: 64 Year
  Sex: Male
  Weight: 106.6 kg

DRUGS (8)
  1. GLIPIZIDE. [Concomitant]
     Active Substance: GLIPIZIDE
  2. MERCAPTOPURINE. [Concomitant]
     Active Substance: MERCAPTOPURINE
  3. BERBERINE [Concomitant]
     Active Substance: BERBERINE
  4. AMPLODIPINE [Concomitant]
  5. METFORMIN [Concomitant]
     Active Substance: METFORMIN HYDROCHLORIDE
  6. GLUCOGOLD [Concomitant]
  7. LISINOPRIL. [Suspect]
     Active Substance: LISINOPRIL
     Indication: HYPERTENSION
     Dosage: 1/2 TABLET  1XADAY MOUTH
     Route: 048
     Dates: start: 201302
  8. SULFASALAZINE. [Concomitant]
     Active Substance: SULFASALAZINE

REACTIONS (6)
  - Pharyngeal disorder [None]
  - Dysarthria [None]
  - Dysphagia [None]
  - Mass [None]
  - Swelling face [None]
  - Local swelling [None]

NARRATIVE: CASE EVENT DATE: 20160906
